FAERS Safety Report 8683394 (Version 4)
Quarter: 2012Q4

REPORT INFORMATION
  Report Type: 
  Country: CA (occurrence: CA)
  Receive Date: 20120726
  Receipt Date: 20120830
  Transmission Date: 20130627
  Serious: Yes (Other)
  Sender: FDA-Public Use
  Company Number: CA-JNJFOC-20120707605

PATIENT
  Sex: Female

DRUGS (3)
  1. RISPERDAL M-TAB [Suspect]
     Indication: BIPOLAR DISORDER
     Route: 048
  2. UNKNOWN MEDICATION [Concomitant]
     Indication: COLITIS
     Route: 065
  3. AN UNKNOWN MEDICATION [Concomitant]
     Indication: CROHN^S DISEASE
     Route: 065

REACTIONS (6)
  - Depression [Not Recovered/Not Resolved]
  - Abasia [Recovered/Resolved]
  - Speech disorder [Recovered/Resolved]
  - Hyperhidrosis [Not Recovered/Not Resolved]
  - Night sweats [Not Recovered/Not Resolved]
  - Headache [Unknown]
